FAERS Safety Report 5689058-X (Version None)
Quarter: 2008Q1

REPORT INFORMATION
  Report Type: 
  Country: None (occurrence: None)
  Receive Date: 20080331
  Receipt Date: 20080321
  Transmission Date: 20080703
  Serious: Yes (Hospitalization)
  Sender: FDA-Public Use
  Company Number: B0513798A

PATIENT
  Age: 81 Year
  Sex: Female

DRUGS (15)
  1. AUGMENTIN '125' [Suspect]
     Indication: INFECTION
     Dosage: 3G SINGLE DOSE
     Route: 042
     Dates: start: 20080121, end: 20080122
  2. INDAPAMIDE [Concomitant]
     Route: 065
  3. TAHOR [Concomitant]
     Route: 065
  4. ASPEGIC 1000 [Concomitant]
     Indication: DRUG USE FOR UNKNOWN INDICATION
     Route: 065
     Dates: start: 20080112
  5. PLAVIX [Concomitant]
     Indication: DRUG USE FOR UNKNOWN INDICATION
     Route: 065
     Dates: start: 20080113
  6. CORDARONE [Concomitant]
     Indication: DRUG USE FOR UNKNOWN INDICATION
     Route: 065
     Dates: start: 20080116, end: 20080202
  7. CARDENSIEL [Concomitant]
     Indication: DRUG USE FOR UNKNOWN INDICATION
     Route: 065
     Dates: start: 20080124, end: 20080204
  8. IMOVANE [Concomitant]
     Indication: DRUG USE FOR UNKNOWN INDICATION
     Route: 065
     Dates: start: 20080124
  9. NEXIUM [Concomitant]
     Indication: DRUG USE FOR UNKNOWN INDICATION
     Route: 065
     Dates: start: 20080124
  10. CALCIPARINE [Concomitant]
     Indication: DRUG USE FOR UNKNOWN INDICATION
     Route: 065
     Dates: start: 20080116
  11. LOVENOX [Concomitant]
     Indication: DRUG USE FOR UNKNOWN INDICATION
     Route: 065
     Dates: start: 20080128
  12. PIPERACILLIN SODIUM AND TAZOBACTAM SODIUM [Concomitant]
     Indication: INFECTION
     Route: 042
     Dates: start: 20080118, end: 20080121
  13. CIFLOX [Concomitant]
     Indication: INFECTION
     Route: 042
     Dates: start: 20080118, end: 20080121
  14. VANCOMYCIN HCL [Concomitant]
     Indication: INFECTION
     Route: 042
     Dates: start: 20080118, end: 20080121
  15. TENORMIN [Concomitant]
     Route: 065

REACTIONS (5)
  - ACUTE GENERALISED EXANTHEMATOUS PUSTULOSIS [None]
  - PRURITUS [None]
  - RASH [None]
  - RASH MACULO-PAPULAR [None]
  - RASH PUSTULAR [None]
